FAERS Safety Report 5313272-6 (Version None)
Quarter: 2007Q2

REPORT INFORMATION
  Report Type: 
  Country: None (occurrence: None)
  Receive Date: 20070501
  Receipt Date: 20070423
  Transmission Date: 20071010
  Serious: Yes (Other)
  Sender: FDA-Public Use
  Company Number: PHBS2007JP06895

PATIENT
  Age: 55 Year
  Sex: Male

DRUGS (1)
  1. DICLOFENAC SODIUM [Suspect]
     Indication: PAIN
     Route: 048

REACTIONS (8)
  - BIOPSY LUNG ABNORMAL [None]
  - CHEST X-RAY ABNORMAL [None]
  - COUGH [None]
  - DYSPNOEA [None]
  - EOSINOPHILIC PNEUMONIA [None]
  - PNEUMOTHORAX [None]
  - PYREXIA [None]
  - THORACIC CAVITY DRAINAGE [None]
